FAERS Safety Report 7334684-5 (Version None)
Quarter: 2011Q1

REPORT INFORMATION
  Report Type: 
  Country: None (occurrence: None)
  Receive Date: 20110307
  Receipt Date: 20110224
  Transmission Date: 20110831
  Serious: Yes (Other)
  Sender: FDA-Public Use
  Company Number: CA-JNJFOC-20110300365

PATIENT
  Sex: Male
  Weight: 83 kg

DRUGS (8)
  1. METHOTREXATE [Concomitant]
     Route: 022
  2. REMICADE [Suspect]
     Indication: ANKYLOSING SPONDYLITIS
     Route: 042
  3. PAROXETINE HCL [Concomitant]
     Route: 048
  4. FOLIC ACID [Concomitant]
     Route: 048
  5. HYDROMORPHONE HCL [Concomitant]
     Route: 048
  6. REMICADE [Suspect]
     Indication: PSORIASIS
     Route: 042
  7. CELEBREX [Concomitant]
     Route: 048
  8. HYDROMORPH [Concomitant]
     Route: 048

REACTIONS (2)
  - OESOPHAGEAL RUPTURE [None]
  - GASTROOESOPHAGEAL REFLUX DISEASE [None]
